FAERS Safety Report 6965192-9 (Version None)
Quarter: 2010Q3

REPORT INFORMATION
  Report Type: 
  Country: None (occurrence: None)
  Receive Date: 20100903
  Receipt Date: 20100826
  Transmission Date: 20110219
  Serious: Yes (Other)
  Sender: FDA-Public Use
  Company Number: US-JNJFOC-20100808838

PATIENT
  Sex: Female
  Weight: 117.94 kg

DRUGS (16)
  1. REMICADE [Suspect]
     Indication: PSORIATIC ARTHROPATHY
     Route: 042
  2. METFORMIN [Concomitant]
  3. CALCIUM+VITAMIN D [Concomitant]
  4. CYCLOBENZAPRINE [Concomitant]
  5. EVOXAC [Concomitant]
  6. LEXAPRO [Concomitant]
  7. SIMVASTATIN [Concomitant]
  8. NABUMETONE [Concomitant]
  9. FOLIC ACID [Concomitant]
  10. LEVOXYL [Concomitant]
  11. OMEPRAZOLE [Concomitant]
  12. GLIMEPIRIDE [Concomitant]
  13. ASPIRIN [Concomitant]
  14. LOVAZA [Concomitant]
  15. M.V.I. [Concomitant]
  16. FLAX SEED OIL [Concomitant]

REACTIONS (3)
  - CERVICAL MYELOPATHY [None]
  - EXOSTOSIS [None]
  - PARAESTHESIA [None]
